FAERS Safety Report 4386274-4 (Version None)
Quarter: 2004Q2

REPORT INFORMATION
  Report Type: 
  Country: None (occurrence: None)
  Receive Date: 20040629
  Receipt Date: 20040617
  Transmission Date: 20050107
  Serious: Yes (Hospitalization)
  Sender: FDA-Public Use
  Company Number: PHHO2004NO08656

PATIENT
  Age: 51 Year
  Sex: Male

DRUGS (3)
  1. FLUVASTATIN SODIUM [Suspect]
     Indication: RENAL TRANSPLANT
     Dosage: 40 MG, QD
     Route: 048
     Dates: start: 20021022
  2. NEORAL [Suspect]
     Indication: RENAL TRANSPLANT
     Dosage: 175 MG/DAY
     Route: 048
     Dates: start: 19930101
  3. PREDNISOLONE [Suspect]
     Indication: RENAL TRANSPLANT
     Dosage: 5 MG/DAY
     Route: 048
     Dates: start: 19930101

REACTIONS (4)
  - BLOOD URIC ACID INCREASED [None]
  - GOUTY ARTHRITIS [None]
  - OEDEMA PERIPHERAL [None]
  - PAIN IN EXTREMITY [None]
